APPROVED DRUG PRODUCT: FLURANDRENOLIDE
Active Ingredient: FLURANDRENOLIDE
Strength: 0.05%
Dosage Form/Route: LOTION;TOPICAL
Application: A207133 | Product #001
Applicant: PADAGIS ISRAEL PHARMACEUTICALS LTD
Approved: Aug 30, 2016 | RLD: No | RS: Yes | Type: RX